FAERS Safety Report 5484018-6 (Version None)
Quarter: 2007Q4

REPORT INFORMATION
  Report Type: 
  Country: None (occurrence: None)
  Receive Date: 20071009
  Receipt Date: 20071009
  Transmission Date: 20080405
  Serious: Yes (Hospitalization)
  Sender: FDA-Public Use
  Company Number: None

PATIENT
  Age: 42 Year
  Sex: Female

DRUGS (7)
  1. SUNITINIB [Suspect]
     Indication: GASTROINTESTINAL STROMAL TUMOUR
     Dosage: 25 MG PO QD
     Route: 048
     Dates: start: 20070905, end: 20071003
  2. IMATINIB [Suspect]
     Indication: GASTROINTESTINAL STROMAL TUMOUR
     Dosage: 200 MG PO QD
     Route: 048
     Dates: start: 20070918, end: 20071003
  3. BROMOCRIPTINE MESYLATE [Concomitant]
  4. GLYCOLAX [Concomitant]
  5. FAMOTIDINE [Concomitant]
  6. FAMOTIDINE [Concomitant]
  7. MULTI-VITAMIN [Concomitant]

REACTIONS (1)
  - PANCREATITIS ACUTE [None]
